FAERS Safety Report 10412783 (Version 2)
Quarter: 2014Q3

REPORT INFORMATION
  Report Type: Spontaneous
  Country: US (occurrence: US)
  Receive Date: 20140827
  Receipt Date: 20140827
  Transmission Date: 20150326
  Serious: Yes (Hospitalization, Other)
  Sender: FDA-Public Use
  Company Number: US-009507513-2010SP028269

PATIENT
  Sex: Female
  Weight: 65.77 kg

DRUGS (5)
  1. NUVARING [Suspect]
     Active Substance: ETHINYL ESTRADIOL\ETONOGESTREL
     Indication: CONTRACEPTION
     Route: 067
     Dates: start: 200510, end: 20080516
  2. VITAMINS (UNSPECIFIED) [Concomitant]
     Active Substance: VITAMINS
     Indication: NUTRITIONAL SUPPLEMENTATION
     Dosage: OFF + ON FOR 10 YEARS
  3. ASCORBIC ACID. [Concomitant]
     Active Substance: ASCORBIC ACID
     Indication: NUTRITIONAL SUPPLEMENTATION
     Dosage: OFF + ON FOR 10 YEARS
  4. CYANOCOBALAMIN. [Concomitant]
     Active Substance: CYANOCOBALAMIN
     Indication: NUTRITIONAL SUPPLEMENTATION
     Dosage: OFF + ON FOR 10 YEARS
  5. GONGJINHYANG SEOL WHITENING INTENSIVE [Concomitant]
     Active Substance: DIACETYL BENZOYL LATHYROL
     Indication: NUTRITIONAL SUPPLEMENTATION
     Dosage: OFF + ON FOR 10 YEARS

REACTIONS (10)
  - Hypothyroidism [Not Recovered/Not Resolved]
  - Melanocytic naevus [Unknown]
  - Pulmonary embolism [Unknown]
  - Non-cardiac chest pain [Unknown]
  - Deep vein thrombosis [Unknown]
  - Skin neoplasm excision [Unknown]
  - Malignant melanoma [Unknown]
  - Gastrooesophageal reflux disease [Unknown]
  - Superficial spreading melanoma stage II [Recovered/Resolved]
  - Melanocytic naevus [Not Recovered/Not Resolved]

NARRATIVE: CASE EVENT DATE: 2005
